FAERS Safety Report 5191540-9 (Version None)
Quarter: 2006Q4

REPORT INFORMATION
  Report Type: 
  Country: None (occurrence: None)
  Receive Date: 20061219
  Receipt Date: 20061206
  Transmission Date: 20070319
  Serious: Yes (Other)
  Sender: FDA-Public Use
  Company Number: 2006114736

PATIENT
  Sex: Female

DRUGS (1)
  1. CHANTIX [Suspect]
     Indication: SMOKING CESSATION THERAPY
     Dates: start: 20060911, end: 20060915

REACTIONS (5)
  - COUGH [None]
  - DYSPNOEA [None]
  - NAUSEA [None]
  - RESPIRATORY DISORDER [None]
  - RHINORRHOEA [None]
